FAERS Safety Report 4429568-6 (Version None)
Quarter: 2004Q3

REPORT INFORMATION
  Report Type: 
  Country: None (occurrence: None)
  Receive Date: 20040816
  Receipt Date: 20040804
  Transmission Date: 20050211
  Serious: Yes (Death)
  Sender: FDA-Public Use
  Company Number: STA-AE-04-MTX-286

PATIENT
  Age: 54 Year
  Sex: Female

DRUGS (4)
  1. RHEUMATREX [Suspect]
     Dosage: 4 MG 1X PER 1WK, ORAL
     Route: 048
     Dates: start: 20040412, end: 20040424
  2. RHEUMATREX (METHORTREXATE, CAPSULE) [Suspect]
     Dosage: 6MG 1X PER 1 WK,ORAL
     Route: 048
     Dates: start: 20040510, end: 20040523
  3. PREDNISOLONE [Concomitant]
  4. LOXONIN (LOXOPROFEN SODIUM) [Concomitant]

REACTIONS (3)
  - ABSCESS [None]
  - ANOREXIA [None]
  - DISSEMINATED INTRAVASCULAR COAGULATION [None]
